FAERS Safety Report 16632722 (Version 1)
Quarter: 2019Q3

REPORT INFORMATION
  Report Type: Spontaneous
  Country: US (occurrence: US)
  Receive Date: 20190725
  Receipt Date: 20190725
  Transmission Date: 20191004
  Serious: No
  Sender: FDA-Public Use
  Company Number: US-ABBVIE-19P-163-2617289-00

PATIENT
  Age: 72 Year
  Sex: Female
  Weight: 43.13 kg

DRUGS (4)
  1. TIROSINT [Suspect]
     Active Substance: LEVOTHYROXINE SODIUM
     Indication: HYPOTHYROIDISM
     Dosage: 112 MCG 3 DAYS PER WEEK AND 125 MCG 5 DAYS PER WEEK
     Route: 048
     Dates: start: 201809
  2. SYNTHROID [Suspect]
     Active Substance: LEVOTHYROXINE SODIUM
     Indication: PRODUCT USED FOR UNKNOWN INDICATION
     Dosage: 112MCG 3 DAYS PER WEEK AND  125MCG 5 DAYS PER WEEK
     Route: 048
  3. SYNTHROID [Suspect]
     Active Substance: LEVOTHYROXINE SODIUM
     Dosage: 112MCG 3 DAYS PER WEEK AND  125MCG 5 DAYS PER WEEK
     Route: 048
  4. TIROSINT [Suspect]
     Active Substance: LEVOTHYROXINE SODIUM
     Dosage: 112 MCG 3 DAYS PER WEEK AND 125 MCG 5 DAYS PER WEEK
     Route: 048
     Dates: start: 201809

REACTIONS (5)
  - Gastrointestinal disorder [Unknown]
  - Reaction to excipient [Unknown]
  - Increased appetite [Unknown]
  - Insomnia [Unknown]
  - Therapeutic product effect increased [Unknown]

NARRATIVE: CASE EVENT DATE: 201809
